FAERS Safety Report 9315488 (Version 2)
Quarter: 2013Q3

REPORT INFORMATION
  Report Type: Spontaneous
  Country: US (occurrence: US)
  Receive Date: 20130529
  Receipt Date: 20130730
  Transmission Date: 20140515
  Serious: No
  Sender: FDA-Public Use
  Company Number: US-ASTRAZENECA-2013SE34941

PATIENT
  Age: 65 Year
  Sex: Male
  Weight: 106.6 kg

DRUGS (13)
  1. SEROQUEL [Suspect]
     Indication: BIPOLAR DISORDER
     Route: 048
     Dates: start: 2000, end: 2000
  2. SEROQUEL [Suspect]
     Indication: BIPOLAR DISORDER
     Route: 048
     Dates: start: 20121025, end: 20130123
  3. SEROQUEL [Suspect]
     Indication: BIPOLAR DISORDER
     Route: 048
     Dates: start: 20130123, end: 20130312
  4. SEROQUEL [Suspect]
     Indication: BIPOLAR DISORDER
     Route: 048
     Dates: start: 20130312
  5. SEROQUEL [Suspect]
     Indication: BIPOLAR DISORDER
     Dosage: AS NEEDED
     Route: 048
  6. SEROQUEL [Suspect]
     Indication: BIPOLAR DISORDER
     Route: 048
     Dates: start: 201305
  7. SEROQUEL [Suspect]
     Indication: BIPOLAR DISORDER
     Route: 048
     Dates: start: 201305
  8. SEROQUEL [Suspect]
     Indication: BIPOLAR DISORDER
     Route: 048
     Dates: start: 201307
  9. SEROQUEL [Suspect]
     Indication: BIPOLAR DISORDER
     Route: 048
     Dates: start: 20130716
  10. METOPROLOL [Suspect]
     Indication: HYPERTENSION
     Route: 065
     Dates: start: 201305
  11. TRANZENE [Concomitant]
  12. ZANTAC [Concomitant]
     Indication: HYPERCHLORHYDRIA
     Dates: start: 2005
  13. FLECAINIDE [Concomitant]
     Indication: ATRIAL FIBRILLATION
     Dates: start: 201305

REACTIONS (20)
  - Pain in extremity [Unknown]
  - Pain in extremity [Unknown]
  - Pain in extremity [Not Recovered/Not Resolved]
  - Gastric pH decreased [Unknown]
  - Peripheral coldness [Unknown]
  - General physical health deterioration [Unknown]
  - Anxiety [Unknown]
  - Mental disorder [Unknown]
  - Musculoskeletal stiffness [Unknown]
  - Muscle tightness [Unknown]
  - Headache [Unknown]
  - Peripheral coldness [Unknown]
  - Initial insomnia [Unknown]
  - Peripheral vascular disorder [Not Recovered/Not Resolved]
  - Fatigue [Not Recovered/Not Resolved]
  - Hypersomnia [Unknown]
  - Muscle spasms [Unknown]
  - Tremor [Unknown]
  - Drug dose omission [Unknown]
  - Intentional drug misuse [Unknown]
